FAERS Safety Report 6317065-2 (Version None)
Quarter: 2009Q3

REPORT INFORMATION
  Report Type: 
  Country: None (occurrence: None)
  Receive Date: 20090820
  Receipt Date: 20090626
  Transmission Date: 20100115
  Serious: Yes (Other)
  Sender: FDA-Public Use
  Company Number: GB-PFIZER INC-2009222772

PATIENT
  Age: 33 Year

DRUGS (4)
  1. CHAMPIX [Suspect]
     Indication: SMOKING CESSATION THERAPY
     Dosage: 1 MG, 2X/DAY
     Route: 048
     Dates: start: 20090518, end: 20090616
  2. NICORETTE MICROTAB [Concomitant]
  3. CO-CODAMOL [Concomitant]
     Indication: ANALGESIA
     Dosage: UNK
     Route: 048
     Dates: start: 20090616
  4. IBUPROFEN [Concomitant]
     Indication: ANALGESIA
     Dosage: UNK
     Route: 061
     Dates: start: 20090616

REACTIONS (3)
  - ANGER [None]
  - DEPRESSED MOOD [None]
  - TEARFULNESS [None]
